FAERS Safety Report 14339603 (Version 1)
Quarter: 2017Q4

REPORT INFORMATION
  Report Type: Report from Study
  Country: US (occurrence: US)
  Receive Date: 20171230
  Receipt Date: 20171230
  Transmission Date: 20180321
  Serious: Yes (Death, Hospitalization, Other)
  Sender: FDA-Public Use
  Company Number: US-TORRENT-00005299

PATIENT
  Age: 49 Year
  Sex: Male

DRUGS (2)
  1. VENLAFAXINE [Suspect]
     Active Substance: VENLAFAXINE HYDROCHLORIDE
     Indication: PRODUCT USED FOR UNKNOWN INDICATION
     Dosage: EXTENDED RELEASE
     Route: 048
  2. ACETAMINOPHEN. [Suspect]
     Active Substance: ACETAMINOPHEN
     Indication: PRODUCT USED FOR UNKNOWN INDICATION

REACTIONS (11)
  - Electrocardiogram QRS complex prolonged [Unknown]
  - Hypotension [Unknown]
  - Ventricular arrhythmia [Fatal]
  - Cardiogenic shock [Fatal]
  - Completed suicide [Fatal]
  - Ileus [Unknown]
  - Toxicity to various agents [Fatal]
  - Transaminases increased [Unknown]
  - Overdose [Fatal]
  - Mental impairment [Unknown]
  - Seizure [Unknown]
